FAERS Safety Report 8596782-8 (Version None)
Quarter: 2012Q3

REPORT INFORMATION
  Report Type: 
  Country: None (occurrence: None)
  Receive Date: 20120815
  Receipt Date: 20120809
  Transmission Date: 20120928
  Serious: Yes (Other)
  Sender: FDA-Public Use
  Company Number: US-COVIDIEN/TYCO HEALTHCARE/MALLINCKRODT-T201203054

PATIENT
  Age: 7 Year
  Sex: Male

DRUGS (2)
  1. METHADONE HYDROCHLORIDE [Suspect]
     Indication: PRODUCT USED FOR UNKNOWN INDICATION
     Dosage: UNK
  2. METHYLIN [Suspect]
     Indication: PRODUCT USED FOR UNKNOWN INDICATION
     Dosage: 10 MG BID

REACTIONS (3)
  - VOMITING [None]
  - WRONG DRUG ADMINISTERED [None]
  - LETHARGY [None]
